FAERS Safety Report 4344988-6 (Version None)
Quarter: 2004Q2

REPORT INFORMATION
  Report Type: 
  Country: None (occurrence: None)
  Receive Date: 20040420
  Receipt Date: 20040402
  Transmission Date: 20050107
  Serious: Yes (Death)
  Sender: FDA-Public Use
  Company Number: 200410874GDS

PATIENT
  Age: 70 Year
  Sex: Male
  Weight: 45 kg

DRUGS (16)
  1. AVELOX [Suspect]
     Indication: PNEUMONIA
     Dosage: 400 MG, TOTAL DAILY, INTRAVENOUS
     Route: 042
     Dates: start: 20031229, end: 20031231
  2. LOSEC [Concomitant]
  3. LYSOMUCIL [Concomitant]
  4. MOXON [Concomitant]
  5. TILDIEM [Concomitant]
  6. DIGITALINE NATIVELLE [Concomitant]
  7. CORVATARD [Concomitant]
  8. ZYPREXA [Concomitant]
  9. LAXOBERON [Concomitant]
  10. DAFALGAN [Concomitant]
  11. COMBIVENT [Concomitant]
  12. CEPHALOSPORINS [Concomitant]
  13. PENICILLIN [Concomitant]
  14. AMUKIN [Concomitant]
  15. TAZOCILLINE [Concomitant]
  16. ROCEPHIN [Concomitant]

REACTIONS (6)
  - BRONCHOPNEUMONIA [None]
  - CARDIAC FAILURE [None]
  - DRUG INEFFECTIVE [None]
  - PYREXIA [None]
  - RESPIRATORY FAILURE [None]
  - RESPIRATORY TRACT INFECTION [None]
